FAERS Safety Report 17683756 (Version 1)
Quarter: 2020Q2

REPORT INFORMATION
  Report Type: Spontaneous
  Country: US (occurrence: US)
  Receive Date: 20200418
  Receipt Date: 20200418
  Transmission Date: 20200714
  Serious: Yes (Death)
  Sender: FDA-Public Use
  Company Number: None

PATIENT
  Age: 79 Year
  Sex: Male
  Weight: 67.5 kg

DRUGS (22)
  1. CAPECITABINE. [Suspect]
     Active Substance: CAPECITABINE
     Indication: PANCREATIC CARCINOMA
     Route: 048
     Dates: start: 20190921, end: 20200416
  2. DETROL LA 4MG, BUPROPION ER 150MG [Concomitant]
  3. OXYCONTIN 10MG, SIMVASTATIN 40MG [Concomitant]
  4. LANSOPRAZOLE 30MG [Concomitant]
     Active Substance: LANSOPRAZOLE
  5. LISINOPRIL 5MG, PEROCET 10/325MG [Concomitant]
  6. ZENPEP 10000-32000 UNIT [Concomitant]
  7. ONDANSETRON 8MG [Concomitant]
     Active Substance: ONDANSETRON
  8. LIDOCAINE/PRILOCAINE 2.5-2.5% [Concomitant]
  9. CYCLOPHOSPHAMIDE 25MG [Concomitant]
     Active Substance: CYCLOPHOSPHAMIDE
  10. METFORMIN 500MG [Concomitant]
     Active Substance: METFORMIN HYDROCHLORIDE
  11. NEUPOGEN [Concomitant]
     Active Substance: FILGRASTIM
  12. OXYCODONE ER 10MG [Concomitant]
  13. RESTORIL 15MG, FLUOXETINE 20MG [Concomitant]
  14. MOVANTIK 25MG, HUMALOG [Concomitant]
  15. VENOFER 20MG/ML [Concomitant]
  16. NICLOSAMIDE, MESALAMINE 1.5GM [Concomitant]
  17. ADDERALL 10MG + 7.5MG [Concomitant]
  18. CHLOROQUINE PHOSPHATE 250MG [Concomitant]
  19. TESTOSTERONE CYPIONATE 200MG/ML [Concomitant]
     Active Substance: TESTOSTERONE CYPIONATE
  20. DESLORATADINE 5MG [Concomitant]
     Active Substance: DESLORATADINE
  21. PROCRIT 20000UNIT, ITRACONAZOLE 100MG [Concomitant]
  22. TOUJEO 300UNIT/ML [Concomitant]

REACTIONS (1)
  - Death [None]

NARRATIVE: CASE EVENT DATE: 20200416
